FAERS Safety Report 4669283-7 (Version None)
Quarter: 2005Q2

REPORT INFORMATION
  Report Type: 
  Country: None (occurrence: None)
  Receive Date: 20050519
  Receipt Date: 20050517
  Transmission Date: 20051028
  Serious: Yes (Hospitalization)
  Sender: FDA-Public Use
  Company Number: TCI2005A02011

PATIENT
  Age: 86 Year
  Sex: Male

DRUGS (7)
  1. LEUPROLIDE ACETATE [Suspect]
     Dosage: 11.25 MG (11.25 MG,1 IN 12 WK)
     Route: 058
     Dates: start: 20050217
  2. LEUPROLIDE ACETATE [Suspect]
     Indication: PROSTATE CANCER
     Dosage: 3.75 MG (3.75 MG, 1 IN 28 D)
     Dates: start: 20050121, end: 20050121
  3. DIGOSIN (DIGOXIN) (TABLETS) [Concomitant]
  4. FLIVAS (NAFTOPIDIL) (TABLETS) [Concomitant]
  5. CHLORMADINONE ACETATE TAB [Concomitant]
  6. BUP-4 (PROPIVERINE HYDROCHLORIDE) (TABLETS) [Concomitant]
  7. EPINASTINE HYDROCHLORIDE (TABLETS) [Concomitant]

REACTIONS (4)
  - BLOOD LACTATE DEHYDROGENASE INCREASED [None]
  - CHOLESTASIS [None]
  - GAMMA-GLUTAMYLTRANSFERASE INCREASED [None]
  - LYMPHOCYTE STIMULATION TEST POSITIVE [None]
